FAERS Safety Report 10922853 (Version 5)
Quarter: 2019Q1

REPORT INFORMATION
  Report Type: Spontaneous
  Country: US (occurrence: US)
  Receive Date: 20150317
  Receipt Date: 20190327
  Transmission Date: 20190417
  Serious: Yes (Other)
  Sender: FDA-Public Use
  Company Number: US-ASTRAZENECA-2011BM07594

PATIENT
  Age: 846 Month
  Sex: Female
  Weight: 127 kg

DRUGS (5)
  1. BYETTA [Suspect]
     Active Substance: EXENATIDE
     Indication: TYPE 2 DIABETES MELLITUS
     Route: 058
  2. GLIMEPIRIDE. [Concomitant]
     Active Substance: GLIMEPIRIDE
     Dosage: UNK
  3. BYETTA [Suspect]
     Active Substance: EXENATIDE
     Indication: TYPE 2 DIABETES MELLITUS
     Route: 058
  4. GLUCOPHAGE [Concomitant]
     Active Substance: METFORMIN HYDROCHLORIDE
  5. BYETTA [Suspect]
     Active Substance: EXENATIDE
     Indication: TYPE 2 DIABETES MELLITUS
     Route: 058

REACTIONS (21)
  - Infection [Unknown]
  - Injection site pain [Unknown]
  - Arthritis [Not Recovered/Not Resolved]
  - Neck pain [Unknown]
  - Feeling abnormal [Unknown]
  - Sleep disorder [Unknown]
  - Rotator cuff syndrome [Not Recovered/Not Resolved]
  - Malaise [Unknown]
  - Intentional product misuse [Unknown]
  - Joint injury [Unknown]
  - Weight fluctuation [Unknown]
  - Nasopharyngitis [Not Recovered/Not Resolved]
  - Tooth abscess [Unknown]
  - Dyspnoea [Recovering/Resolving]
  - Wrong technique in device usage process [Unknown]
  - Road traffic accident [Unknown]
  - Arthralgia [Recovering/Resolving]
  - Asthenia [Unknown]
  - Diabetes mellitus inadequate control [Unknown]
  - Device leakage [Unknown]
  - Underdose [Unknown]

NARRATIVE: CASE EVENT DATE: 201503
